FAERS Safety Report 6006837-X (Version None)
Quarter: 2008Q4

REPORT INFORMATION
  Report Type: 
  Country: None (occurrence: None)
  Receive Date: 20081217
  Receipt Date: 20071023
  Transmission Date: 20090506
  Serious: No
  Sender: FDA-Public Use
  Company Number: US-ASTRAZENECA-2007UW24765

PATIENT
  Age: 58 Year
  Sex: Female
  Weight: 99.8 kg

DRUGS (3)
  1. CRESTOR [Suspect]
     Indication: BLOOD CHOLESTEROL INCREASED
     Route: 048
  2. PAXIL [Concomitant]
  3. ZETIA [Concomitant]

REACTIONS (1)
  - FLUSHING [None]
